FAERS Safety Report 12634102 (Version 4)
Quarter: 2016Q4

REPORT INFORMATION
  Report Type: Spontaneous
  Country: US (occurrence: US)
  Receive Date: 20160809
  Receipt Date: 20161027
  Transmission Date: 20170207
  Serious: Yes (Other)
  Sender: FDA-Public Use
  Company Number: US-GLAXOSMITHKLINE-US2016GSK107368

PATIENT
  Age: 48 Year
  Sex: Female

DRUGS (2)
  1. TANZEUM [Suspect]
     Active Substance: ALBIGLUTIDE
     Indication: TYPE 2 DIABETES MELLITUS
     Dosage: 30 MG, WE
     Dates: start: 20160624
  2. TANZEUM [Suspect]
     Active Substance: ALBIGLUTIDE
     Dosage: 30 MG, WE
     Route: 042
     Dates: start: 201606

REACTIONS (11)
  - Diabetes mellitus inadequate control [Unknown]
  - Aggression [Unknown]
  - Drug dose omission [Unknown]
  - Headache [Unknown]
  - Device use error [Unknown]
  - Blood glucose increased [Not Recovered/Not Resolved]
  - Accidental exposure to product [Unknown]
  - Decreased appetite [Unknown]
  - Abdominal distension [Unknown]
  - Thirst [Unknown]
  - Wrong technique in product usage process [Unknown]

NARRATIVE: CASE EVENT DATE: 20160624
